FAERS Safety Report 10284478 (Version 1)
Quarter: 2014Q3

REPORT INFORMATION
  Report Type: Spontaneous
  Country: DE (occurrence: DE)
  Receive Date: 20140708
  Receipt Date: 20140708
  Transmission Date: 20150326
  Serious: Yes (Hospitalization)
  Sender: FDA-Public Use
  Company Number: DE-IPSEN BIOPHARMACEUTICALS, INC.-2014-3296

PATIENT
  Age: 81 Year
  Sex: Female

DRUGS (8)
  1. KINZALKOMB [Concomitant]
     Active Substance: HYDROCHLOROTHIAZIDE\TELMISARTAN
     Indication: RENAL CANCER STAGE I
     Dosage: NOT REPORTED
     Route: 065
  2. INSULIN HUMALOG MIX [Concomitant]
     Indication: TYPE 2 DIABETES MELLITUS
     Route: 065
     Dates: start: 20140307
  3. FUROSEMIDE. [Concomitant]
     Active Substance: FUROSEMIDE
     Indication: BLOOD URIC ACID INCREASED
     Dosage: NOT REPORTED
     Route: 065
  4. SOMATULINE AUTOGEL [Suspect]
     Active Substance: LANREOTIDE ACETATE
     Indication: PRODUCT USED FOR UNKNOWN INDICATION
     Dosage: 120 MG
     Route: 065
  5. ZOMECTA [Concomitant]
     Indication: OSTEOLYSIS
     Route: 065
     Dates: start: 20130703
  6. FUROSEMID [Concomitant]
     Active Substance: FUROSEMIDE
     Indication: EMPHYSEMA
     Route: 065
     Dates: start: 20140306
  7. AFINITOR [Suspect]
     Active Substance: EVEROLIMUS
     Indication: NEUROENDOCRINE TUMOUR
     Route: 065
     Dates: start: 20140206, end: 20140307
  8. CALCICAL KABI [Concomitant]
     Indication: BLOOD POTASSIUM DECREASED
     Dosage: NOT REPORTED
     Route: 065

REACTIONS (1)
  - Pelvic venous thrombosis [Recovered/Resolved]

NARRATIVE: CASE EVENT DATE: 20140217
